FAERS Safety Report 19902353 (Version 1)
Quarter: 2021Q3

REPORT INFORMATION
  Report Type: Report from Study
  Country: US (occurrence: US)
  Receive Date: 20210930
  Receipt Date: 20210930
  Transmission Date: 20211014
  Serious: Yes (Hospitalization, Other)
  Sender: FDA-Public Use
  Company Number: US-GW PHARMA-202108USGW04146

PATIENT

DRUGS (1)
  1. EPIDIOLEX [Suspect]
     Active Substance: CANNABIDIOL
     Indication: PRODUCT USED FOR UNKNOWN INDICATION
     Dosage: UNK
     Route: 048

REACTIONS (4)
  - Intentional product use issue [Unknown]
  - Weight decreased [Unknown]
  - Hospitalisation [Recovered/Resolved]
  - Brain operation [Unknown]

NARRATIVE: CASE EVENT DATE: 2021
